FAERS Safety Report 8723377 (Version 3)
Quarter: 2012Q4

REPORT INFORMATION
  Report Type: 
  Country: US (occurrence: US)
  Receive Date: 20120814
  Receipt Date: 20121011
  Transmission Date: 20130627
  Serious: Yes (Disabling)
  Sender: FDA-Public Use
  Company Number: US-PERRIGO-12US006812

PATIENT
  Age: 50 Year
  Sex: Female
  Weight: 99.77 kg

DRUGS (3)
  1. PHENOL 1.4% CHERRY 328 [Suspect]
     Indication: OROPHARYNGEAL PAIN
     Dosage: 1 or 2 sprays to back of throat, single
     Route: 048
     Dates: start: 20120302, end: 20120302
  2. NEXIUM [Concomitant]
     Indication: PRODUCT USED FOR UNKNOWN INDICATION
     Dosage: 40 mg, qd
     Route: 065
  3. PENICILLIN VK [Concomitant]
     Indication: OROPHARYNGEAL PAIN
     Dosage: Unknown, Unknown
     Route: 065

REACTIONS (7)
  - Pharyngeal oedema [Recovered/Resolved]
  - Mouth injury [Recovered/Resolved]
  - Thermal burn [Recovered/Resolved]
  - Throat irritation [Recovered/Resolved]
  - Pharyngeal erythema [Recovered/Resolved]
  - Oropharyngeal pain [Recovered/Resolved]
  - Dysphagia [Recovered/Resolved]
